FAERS Safety Report 22185588 (Version 1)
Quarter: 2023Q2

REPORT INFORMATION
  Report Type: Spontaneous
  Country: CN (occurrence: CN)
  Receive Date: 20230407
  Receipt Date: 20230407
  Transmission Date: 20230721
  Serious: Yes (Other)
  Sender: FDA-Public Use
  Company Number: CN-SA-SAC20230404000233

PATIENT
  Age: 52 Year
  Sex: Male
  Weight: 58 kg

DRUGS (3)
  1. OXALIPLATIN [Suspect]
     Active Substance: OXALIPLATIN
     Indication: Neoplasm malignant
     Dosage: 100 MG, QD
     Route: 065
     Dates: start: 20230329, end: 20230329
  2. LEUCOVORIN CALCIUM [Suspect]
     Active Substance: LEUCOVORIN CALCIUM
     Indication: Neoplasm malignant
     Dosage: 600MG QD
     Route: 041
     Dates: start: 20230329, end: 20230329
  3. DEXTROSE [Concomitant]
     Active Substance: DEXTROSE\DEXTROSE MONOHYDRATE
     Dosage: 110 ML

REACTIONS (8)
  - Skin discolouration [Recovering/Resolving]
  - Chest discomfort [Recovering/Resolving]
  - Abdominal pain [Recovering/Resolving]
  - Cyanosis [Recovering/Resolving]
  - Oxygen saturation decreased [Recovering/Resolving]
  - Respiratory rate increased [Recovering/Resolving]
  - Blood pressure increased [Recovering/Resolving]
  - Dyspnoea [Recovering/Resolving]

NARRATIVE: CASE EVENT DATE: 20230329
